FAERS Safety Report 24113486 (Version 2)
Quarter: 2024Q3

REPORT INFORMATION
  Report Type: Report from Study
  Country: US (occurrence: US)
  Receive Date: 20240720
  Receipt Date: 20240808
  Transmission Date: 20241016
  Serious: No
  Sender: NOVARTIS
  Company Number: US-002147023-NVSC2024US144517

PATIENT
  Age: 38 Year
  Sex: Female

DRUGS (2)
  1. KESIMPTA [Suspect]
     Active Substance: OFATUMUMAB
     Indication: Multiple sclerosis
     Dosage: 1 DOSAGE FORM (LOADING DOSE)
     Route: 065
     Dates: start: 20240710
  2. KESIMPTA [Suspect]
     Active Substance: OFATUMUMAB
     Dosage: UNK (STRENGTH 20 MG)
     Route: 065

REACTIONS (7)
  - Pain [Unknown]
  - Lethargy [Unknown]
  - Device malfunction [Unknown]
  - Device use error [Unknown]
  - Incorrect dose administered [Unknown]
  - Accidental exposure to product [Unknown]
  - Anxiety [Unknown]

NARRATIVE: CASE EVENT DATE: 20240710
